FAERS Safety Report 6912230-5 (Version None)
Quarter: 2010Q3

REPORT INFORMATION
  Report Type: 
  Country: None (occurrence: None)
  Receive Date: 20100806
  Receipt Date: 20080401
  Transmission Date: 20110219
  Serious: No
  Sender: FDA-Public Use
  Company Number: US-PFIZER INC-2008010910

PATIENT
  Sex: Female

DRUGS (2)
  1. DETROL LA [Suspect]
     Indication: HYPERTONIC BLADDER
     Route: 048
     Dates: start: 20080128
  2. ELMIRON [Suspect]
     Dates: start: 20080128

REACTIONS (4)
  - PELVIC PAIN [None]
  - RETCHING [None]
  - SENSATION OF FOREIGN BODY [None]
  - VOMITING [None]
